FAERS Safety Report 19206243 (Version 2)
Quarter: 2021Q2

REPORT INFORMATION
  Report Type: Report from Study
  Country: IT (occurrence: IT)
  Receive Date: 20210503
  Receipt Date: 20210510
  Transmission Date: 20210717
  Serious: Yes (Hospitalization)
  Sender: FDA-Public Use
  Company Number: IT-PFIZER INC-2021462296

PATIENT
  Age: 62 Year
  Sex: Female
  Weight: 70 kg

DRUGS (11)
  1. ATENOLOLO EG [Concomitant]
     Active Substance: ATENOLOL
     Indication: HYPERTENSION
     Dosage: 50 MG
     Route: 048
     Dates: start: 20160614
  2. KAYEXALATE [Concomitant]
     Active Substance: SODIUM POLYSTYRENE SULFONATE
     Indication: HYPERKALAEMIA
     Dosage: 15 G
     Route: 054
     Dates: start: 20200214
  3. RETACRIT [EPOETIN ZETA] [Concomitant]
     Active Substance: ERYTHROPOIETIN
     Indication: RENAL FAILURE
     Dosage: 10 KIU
     Route: 058
     Dates: start: 20210225
  4. PANTORC [Concomitant]
     Active Substance: PANTOPRAZOLE SODIUM
     Indication: DYSPEPSIA
     Dosage: 40 MG
     Route: 048
     Dates: start: 20210225
  5. FUROSEMIDE SODIUM [Concomitant]
     Active Substance: FUROSEMIDE SODIUM
     Indication: HYPERTENSION
     Dosage: 25 MG
     Route: 048
     Dates: start: 20210225
  6. CALCIPARINA [Suspect]
     Active Substance: HEPARIN CALCIUM
     Indication: THROMBOSIS PROPHYLAXIS
     Dosage: 10 KIU, ALTERNATE DAY
     Route: 058
     Dates: start: 20210318, end: 20210329
  7. ENOXAPARIN SODIUM. [Suspect]
     Active Substance: ENOXAPARIN SODIUM
     Indication: THROMBOSIS PROPHYLAXIS
     Dosage: 12 KIU, WEEKLY
     Route: 042
     Dates: start: 20210319, end: 20210329
  8. CATAPRESAN TTS?2 [Concomitant]
     Indication: HYPERTENSION
     Dosage: 5 MG
     Route: 003
     Dates: start: 20190524
  9. ROCALTROL [Concomitant]
     Active Substance: CALCITRIOL
     Indication: RENAL FAILURE
     Dosage: 0.5 UG
     Route: 048
     Dates: start: 20190531
  10. ZYLORIC [Concomitant]
     Active Substance: ALLOPURINOL
     Indication: HYPERURICAEMIA
     Dosage: 150 MG
     Route: 048
     Dates: start: 20190524
  11. MEDROL [Suspect]
     Active Substance: METHYLPREDNISOLONE
     Indication: RENAL FAILURE
     Dosage: 16 MG, 1X/DAY
     Route: 048
     Dates: start: 20210318, end: 20210320

REACTIONS (3)
  - Peripheral artery thrombosis [Not Recovered/Not Resolved]
  - Heparin-induced thrombocytopenia [Not Recovered/Not Resolved]
  - Anaemia [Not Recovered/Not Resolved]

NARRATIVE: CASE EVENT DATE: 20210329
